FAERS Safety Report 18155991 (Version 2)
Quarter: 2020Q3

REPORT INFORMATION
  Report Type: Spontaneous
  Country: US (occurrence: US)
  Receive Date: 20200817
  Receipt Date: 20200911
  Transmission Date: 20201103
  Serious: No
  Sender: FDA-Public Use
  Company Number: US-GLAXOSMITHKLINE-US2020AMR161135

PATIENT
  Sex: Male

DRUGS (2)
  1. ZEJULA [Suspect]
     Active Substance: NIRAPARIB
     Indication: PROSTATE CANCER
     Dosage: 300 MG, QD
     Dates: end: 20200825
  2. ZEJULA [Suspect]
     Active Substance: NIRAPARIB
     Indication: CHEMOTHERAPY
     Dosage: 300 MG, QD
     Dates: start: 20200717

REACTIONS (6)
  - Constipation [Unknown]
  - Vomiting [Unknown]
  - Headache [Unknown]
  - Nausea [Unknown]
  - Adverse drug reaction [Unknown]
  - Product use in unapproved indication [Unknown]
